FAERS Safety Report 5815992-3 (Version None)
Quarter: 2008Q3

REPORT INFORMATION
  Report Type: 
  Country: None (occurrence: None)
  Receive Date: 20080721
  Receipt Date: 20080711
  Transmission Date: 20090109
  Serious: Yes (Hospitalization)
  Sender: FDA-Public Use
  Company Number: PHHY2008JP12892

PATIENT
  Age: 58 Year
  Sex: Male

DRUGS (4)
  1. CYCLOSPORINE [Suspect]
     Indication: RHEUMATOID ARTHRITIS
     Dosage: UNK
     Route: 048
  2. ETANERCEPT [Suspect]
     Indication: RHEUMATOID ARTHRITIS
  3. ETANERCEPT [Suspect]
     Indication: ARTHRALGIA
  4. PREDNISOLONE [Concomitant]
     Indication: RHEUMATOID ARTHRITIS

REACTIONS (6)
  - COMPUTERISED TOMOGRAM ABNORMAL [None]
  - GRANULOMA [None]
  - LUNG INFECTION [None]
  - MYCOBACTERIAL INFECTION [None]
  - PNEUMONIA PNEUMOCOCCAL [None]
  - PRODUCTIVE COUGH [None]
